FAERS Safety Report 8243874-9 (Version None)
Quarter: 2012Q1

REPORT INFORMATION
  Report Type: 
  Country: None (occurrence: None)
  Receive Date: 20120329
  Receipt Date: 20110309
  Transmission Date: 20120608
  Serious: No
  Sender: FDA-Public Use
  Company Number: US-MYLANLABS-2011S1004664

PATIENT
  Age: 47 Year
  Sex: Female

DRUGS (2)
  1. ESTRADIOL [Suspect]
     Indication: HYSTERECTOMY
     Dosage: CHANGED QWEEK.
     Route: 062
     Dates: start: 20101228
  2. DIOVAN [Concomitant]
     Indication: BLOOD PRESSURE
     Route: 048

REACTIONS (2)
  - APPLICATION SITE ERYTHEMA [None]
  - APPLICATION SITE DRYNESS [None]
